FAERS Safety Report 11031019 (Version 1)
Quarter: 2015Q2

REPORT INFORMATION
  Report Type: Spontaneous
  Country: JP (occurrence: JP)
  Receive Date: 20150415
  Receipt Date: 20150415
  Transmission Date: 20150821
  Serious: Yes (Hospitalization)
  Sender: FDA-Public Use
  Company Number: JP-PFIZER INC-2015105737

PATIENT
  Age: 68 Year
  Sex: Male
  Weight: 51 kg

DRUGS (100)
  1. CAMPTO [Suspect]
     Active Substance: IRINOTECAN
     Dosage: 143.4 MG/M2, 1X/DAY (224 MG/BODY)
     Route: 041
     Dates: start: 20140605, end: 20140605
  2. CAMPTO [Suspect]
     Active Substance: IRINOTECAN
     Dosage: 143.4 MG/M2, 1X/DAY (224 MG/BODY)
     Route: 041
     Dates: start: 20141030, end: 20141030
  3. CAMPTO [Suspect]
     Active Substance: IRINOTECAN
     Dosage: 143.4 MG/M2, 1X/DAY (224 MG/BODY)
     Route: 041
     Dates: start: 20150122, end: 20150122
  4. 5-FU [Suspect]
     Active Substance: FLUOROURACIL
     Dosage: 396.9 MG/M2, 1X/DAY (620 MG/BODY)
     Route: 040
     Dates: start: 20140508, end: 20140508
  5. 5-FU [Suspect]
     Active Substance: FLUOROURACIL
     Dosage: 2388 MG/M2,  ONCE IN 2 DAYS (3730 MG/BODY)
     Route: 041
     Dates: start: 20140508, end: 20140508
  6. 5-FU [Suspect]
     Active Substance: FLUOROURACIL
     Dosage: 2388 MG/M2,  ONCE IN 2 DAYS (3730 MG/BODY)
     Route: 041
     Dates: start: 20140828, end: 20140828
  7. 5-FU [Suspect]
     Active Substance: FLUOROURACIL
     Dosage: 396.9 MG/M2, 1X/DAY (620 MG/BODY)
     Route: 040
     Dates: start: 20141030, end: 20141030
  8. 5-FU [Suspect]
     Active Substance: FLUOROURACIL
     Dosage: 2388 MG/M2,  ONCE IN 2 DAYS (3730 MG/BODY)
     Route: 041
     Dates: start: 20141211, end: 20141211
  9. 5-FU [Suspect]
     Active Substance: FLUOROURACIL
     Dosage: 396.9 MG/M2, 1X/DAY (620 MG/BODY)
     Route: 040
     Dates: start: 20140327, end: 20140327
  10. AVE0005 [Suspect]
     Active Substance: AFLIBERCEPT
     Dosage: 65.3 MG/M2, 1X/DAY (102 MG/BODY)
     Route: 041
     Dates: start: 20140130, end: 20140130
  11. AVE0005 [Suspect]
     Active Substance: AFLIBERCEPT
     Dosage: 65.3 MG/M2, 1X/DAY (102 MG/BODY)
     Route: 041
     Dates: start: 20150122, end: 20150122
  12. AVE0005 [Suspect]
     Active Substance: AFLIBERCEPT
     Dosage: 65.3 MG/M2, 1X/DAY (102 MG/BODY)
     Route: 041
     Dates: start: 20150212, end: 20150212
  13. LOPERAMIDE [Concomitant]
     Active Substance: LOPERAMIDE
     Dosage: UNK
     Dates: start: 20130221
  14. CAMPTO [Suspect]
     Active Substance: IRINOTECAN
     Dosage: 143.4 MG/M2, 1X/DAY (224 MG/BODY)
     Route: 041
     Dates: start: 20140313, end: 20140313
  15. CAMPTO [Suspect]
     Active Substance: IRINOTECAN
     Dosage: 143.4 MG/M2, 1X/DAY (224 MG/BODY)
     Route: 041
     Dates: start: 20140828, end: 20140828
  16. 5-FU [Suspect]
     Active Substance: FLUOROURACIL
     Dosage: 396.9 MG/M2, 1X/DAY (620 MG/BODY)
     Route: 040
     Dates: start: 20140424, end: 20140424
  17. 5-FU [Suspect]
     Active Substance: FLUOROURACIL
     Dosage: 396.9 MG/M2, 1X/DAY (620 MG/BODY)
     Route: 040
     Dates: start: 20140522, end: 20140522
  18. 5-FU [Suspect]
     Active Substance: FLUOROURACIL
     Dosage: 396.9 MG/M2, 1X/DAY (620 MG/BODY)
     Route: 040
     Dates: start: 20140828, end: 20140828
  19. 5-FU [Suspect]
     Active Substance: FLUOROURACIL
     Dosage: 2388 MG/M2,  ONCE IN 2 DAYS (3730 MG/BODY)
     Route: 041
     Dates: start: 20150122, end: 20150122
  20. 5-FU [Suspect]
     Active Substance: FLUOROURACIL
     Dosage: 2388 MG/M2,  ONCE IN 2 DAYS (3730 MG/BODY)
     Route: 041
     Dates: start: 20140130, end: 20140130
  21. 5-FU [Suspect]
     Active Substance: FLUOROURACIL
     Dosage: 2388 MG/M2,  ONCE IN 2 DAYS (3730 MG/BODY)
     Route: 041
     Dates: start: 20140327, end: 20140327
  22. AVE0005 [Suspect]
     Active Substance: AFLIBERCEPT
     Indication: COLON CANCER
     Dosage: 65.3 MG/M2, 1X/DAY (102 MG/BODY)
     Route: 041
     Dates: start: 20140116, end: 20140116
  23. AVE0005 [Suspect]
     Active Substance: AFLIBERCEPT
     Dosage: 65.3 MG/M2, 1X/DAY (102 MG/BODY)
     Route: 041
     Dates: start: 20140313, end: 20140313
  24. AVE0005 [Suspect]
     Active Substance: AFLIBERCEPT
     Dosage: 65.3 MG/M2, 1X/DAY (102 MG/BODY)
     Route: 041
     Dates: start: 20140327, end: 20140327
  25. AVE0005 [Suspect]
     Active Substance: AFLIBERCEPT
     Dosage: 65.3 MG/M2, 1X/DAY (102 MG/BODY)
     Route: 041
     Dates: start: 20150101, end: 20150101
  26. AVE0005 [Suspect]
     Active Substance: AFLIBERCEPT
     Dosage: 65.3 MG/M2, 1X/DAY (102 MG/BODY)
     Route: 041
     Dates: start: 20150304
  27. CAMPTO [Suspect]
     Active Substance: IRINOTECAN
     Dosage: 143.4 MG/M2, 1X/DAY (224 MG/BODY)
     Route: 041
     Dates: start: 20140227, end: 20140227
  28. CAMPTO [Suspect]
     Active Substance: IRINOTECAN
     Dosage: 143.4 MG/M2, 1X/DAY (224 MG/BODY)
     Route: 041
     Dates: start: 20140410, end: 20140410
  29. CAMPTO [Suspect]
     Active Substance: IRINOTECAN
     Dosage: 143.4 MG/M2, 1X/DAY (224 MG/BODY)
     Route: 041
     Dates: start: 20140626, end: 20140626
  30. CAMPTO [Suspect]
     Active Substance: IRINOTECAN
     Dosage: 143.4 MG/M2, 1X/DAY (224 MG/BODY)
     Route: 041
     Dates: start: 20141009, end: 20141009
  31. 5-FU [Suspect]
     Active Substance: FLUOROURACIL
     Indication: COLON CANCER
     Dosage: 396.9 MG/M2, 1X/DAY (620 MG/BODY)
     Route: 040
     Dates: start: 20140116, end: 20140116
  32. 5-FU [Suspect]
     Active Substance: FLUOROURACIL
     Dosage: 396.9 MG/M2, 1X/DAY (620 MG/BODY)
     Route: 040
     Dates: start: 20140605, end: 20140605
  33. 5-FU [Suspect]
     Active Substance: FLUOROURACIL
     Dosage: 2388 MG/M2,  ONCE IN 2 DAYS (3730 MG/BODY)
     Route: 041
     Dates: start: 20141009, end: 20141009
  34. 5-FU [Suspect]
     Active Substance: FLUOROURACIL
     Dosage: 2388 MG/M2,  ONCE IN 2 DAYS (3730 MG/BODY)
     Route: 041
     Dates: start: 20141120, end: 20141120
  35. 5-FU [Suspect]
     Active Substance: FLUOROURACIL
     Dosage: 396.9 MG/M2, 1X/DAY (620 MG/BODY)
     Route: 040
     Dates: start: 20140313, end: 20140313
  36. AVE0005 [Suspect]
     Active Substance: AFLIBERCEPT
     Dosage: 65.3 MG/M2, 1X/DAY (102 MG/BODY)
     Route: 041
     Dates: start: 20140213, end: 20140213
  37. AVE0005 [Suspect]
     Active Substance: AFLIBERCEPT
     Dosage: 65.3 MG/M2, 1X/DAY (102 MG/BODY)
     Route: 041
     Dates: start: 20140717, end: 20140717
  38. AVE0005 [Suspect]
     Active Substance: AFLIBERCEPT
     Dosage: 65.3 MG/M2, 1X/DAY (102 MG/BODY)
     Route: 041
     Dates: start: 20140807, end: 20140807
  39. BIOFERMIN R [Concomitant]
     Active Substance: BACILLUS SUBTILIS\LACTOBACILLUS ACIDOPHILUS\STREPTOCOCCUS FAECAIS
     Dosage: UNK
     Dates: start: 20111101
  40. CAMPTO [Suspect]
     Active Substance: IRINOTECAN
     Dosage: 143.4 MG/M2, 1X/DAY (224 MG/BODY)
     Route: 041
     Dates: start: 20150304
  41. 5-FU [Suspect]
     Active Substance: FLUOROURACIL
     Dosage: 2388 MG/M2,  ONCE IN 2 DAYS (3730 MG/BODY)
     Route: 041
     Dates: start: 20140605, end: 20140605
  42. 5-FU [Suspect]
     Active Substance: FLUOROURACIL
     Dosage: 2388 MG/M2,  ONCE IN 2 DAYS (3730 MG/BODY)
     Route: 041
     Dates: start: 20140626, end: 20140626
  43. 5-FU [Suspect]
     Active Substance: FLUOROURACIL
     Dosage: 396.9 MG/M2, 1X/DAY (620 MG/BODY)
     Route: 040
     Dates: start: 20140918, end: 20140918
  44. 5-FU [Suspect]
     Active Substance: FLUOROURACIL
     Dosage: 2388 MG/M2,  ONCE IN 2 DAYS (3730 MG/BODY)
     Route: 041
     Dates: start: 20150212, end: 20150212
  45. 5-FU [Suspect]
     Active Substance: FLUOROURACIL
     Dosage: 396.9 MG/M2, 1X/DAY (620 MG/BODY)
     Route: 040
     Dates: start: 20140130, end: 20140130
  46. 5-FU [Suspect]
     Active Substance: FLUOROURACIL
     Dosage: 2388 MG/M2,  ONCE IN 2 DAYS (3730 MG/BODY)
     Route: 041
     Dates: start: 20140313, end: 20140313
  47. AVE0005 [Suspect]
     Active Substance: AFLIBERCEPT
     Dosage: 65.3 MG/M2, 1X/DAY (102 MG/BODY)
     Route: 041
     Dates: start: 20140227, end: 20140227
  48. AVE0005 [Suspect]
     Active Substance: AFLIBERCEPT
     Dosage: 65.3 MG/M2, 1X/DAY (102 MG/BODY)
     Route: 041
     Dates: start: 20140424, end: 20140424
  49. AVE0005 [Suspect]
     Active Substance: AFLIBERCEPT
     Dosage: 65.3 MG/M2, 1X/DAY (102 MG/BODY)
     Route: 041
     Dates: start: 20140508, end: 20140508
  50. AVE0005 [Suspect]
     Active Substance: AFLIBERCEPT
     Dosage: 65.3 MG/M2, 1X/DAY (102 MG/BODY)
     Route: 041
     Dates: start: 20140918, end: 20140918
  51. AVE0005 [Suspect]
     Active Substance: AFLIBERCEPT
     Dosage: 65.3 MG/M2, 1X/DAY (102 MG/BODY)
     Route: 041
     Dates: start: 20141030, end: 20141030
  52. CAMPTO [Suspect]
     Active Substance: IRINOTECAN
     Dosage: 143.4 MG/M2, 1X/DAY (224 MG/BODY)
     Route: 041
     Dates: start: 20140918, end: 20140918
  53. CAMPTO [Suspect]
     Active Substance: IRINOTECAN
     Dosage: 143.4 MG/M2, 1X/DAY (224 MG/BODY)
     Route: 041
     Dates: start: 20150212, end: 20150212
  54. 5-FU [Suspect]
     Active Substance: FLUOROURACIL
     Dosage: 2388 MG/M2,  ONCE IN 2 DAYS (3730 MG/BODY)
     Route: 041
     Dates: start: 20140116, end: 20140116
  55. 5-FU [Suspect]
     Active Substance: FLUOROURACIL
     Dosage: 2388 MG/M2,  ONCE IN 2 DAYS (3730 MG/BODY)
     Route: 041
     Dates: start: 20140424, end: 20140424
  56. 5-FU [Suspect]
     Active Substance: FLUOROURACIL
     Dosage: 396.9 MG/M2, 1X/DAY (620 MG/BODY)
     Route: 040
     Dates: start: 20140807, end: 20140807
  57. 5-FU [Suspect]
     Active Substance: FLUOROURACIL
     Dosage: 396.9 MG/M2, 1X/DAY (620 MG/BODY)
     Route: 040
     Dates: start: 20141009, end: 20141009
  58. 5-FU [Suspect]
     Active Substance: FLUOROURACIL
     Dosage: 396.9 MG/M2, 1X/DAY (620 MG/BODY)
     Route: 040
     Dates: start: 20150122, end: 20150122
  59. 5-FU [Suspect]
     Active Substance: FLUOROURACIL
     Dosage: 396.9 MG/M2, 1X/DAY (620 MG/BODY)
     Route: 040
     Dates: start: 20140213, end: 20140213
  60. 5-FU [Suspect]
     Active Substance: FLUOROURACIL
     Dosage: 2388 MG/M2,  ONCE IN 2 DAYS (3730 MG/BODY)
     Route: 041
     Dates: start: 20140213, end: 20140213
  61. AMLODIN OD [Concomitant]
     Active Substance: AMLODIPINE BESYLATE
     Dosage: UNK
     Dates: start: 20111018
  62. CAMPTO [Suspect]
     Active Substance: IRINOTECAN
     Dosage: 143.4 MG/M2, 1X/DAY (224 MG/BODY)
     Route: 041
     Dates: start: 20140213, end: 20140213
  63. CAMPTO [Suspect]
     Active Substance: IRINOTECAN
     Dosage: 143.4 MG, 1X/DAY (224 MG/BODY)
     Route: 041
     Dates: start: 20140327, end: 20140327
  64. CAMPTO [Suspect]
     Active Substance: IRINOTECAN
     Dosage: 143.4 MG/M2, 1X/DAY (224 MG/BODY)
     Route: 041
     Dates: start: 20140522, end: 20140522
  65. CAMPTO [Suspect]
     Active Substance: IRINOTECAN
     Dosage: 143.4 MG/M2, 1X/DAY (224 MG/BODY)
     Route: 041
     Dates: start: 20140717, end: 20140717
  66. CAMPTO [Suspect]
     Active Substance: IRINOTECAN
     Dosage: 143.4 MG/M2, 1X/DAY (224 MG/BODY)
     Route: 041
     Dates: start: 20141120, end: 20141120
  67. CAMPTO [Suspect]
     Active Substance: IRINOTECAN
     Dosage: 143.4 MG/M2, 1X/DAY (224 MG/BODY)
     Route: 041
     Dates: start: 20141211, end: 20141211
  68. CAMPTO [Suspect]
     Active Substance: IRINOTECAN
     Dosage: 143.4 MG/M2, 1X/DAY (224 MG/BODY)
     Route: 041
     Dates: start: 20150101, end: 20150101
  69. 5-FU [Suspect]
     Active Substance: FLUOROURACIL
     Dosage: 396.9 MG/M2, 1X/DAY (620 MG/BODY)
     Route: 040
     Dates: start: 20140410, end: 20140410
  70. 5-FU [Suspect]
     Active Substance: FLUOROURACIL
     Dosage: 2388 MG/M2,  ONCE IN 2 DAYS (3730 MG/BODY)
     Route: 041
     Dates: start: 20141030, end: 20141030
  71. 5-FU [Suspect]
     Active Substance: FLUOROURACIL
     Dosage: 396.9 MG/M2, 1X/DAY (620 MG/BODY)
     Route: 040
     Dates: start: 20150101, end: 20150101
  72. 5-FU [Suspect]
     Active Substance: FLUOROURACIL
     Dosage: 2388 MG/M2,  ONCE IN 2 DAYS (3730 MG/BODY)
     Route: 041
     Dates: start: 20150101, end: 20150101
  73. 5-FU [Suspect]
     Active Substance: FLUOROURACIL
     Dosage: 396.9 MG/M2, 1X/DAY (620 MG/BODY)
     Route: 040
     Dates: start: 20150304
  74. 5-FU [Suspect]
     Active Substance: FLUOROURACIL
     Dosage: 396.9 MG/M2, 1X/DAY (620 MG/BODY)
     Route: 040
     Dates: start: 20140227, end: 20140227
  75. CAMPTO [Suspect]
     Active Substance: IRINOTECAN
     Dosage: 143.4 MG/M2, 1X/DAY (224 MG/BODY)
     Route: 041
     Dates: start: 20140130, end: 20140130
  76. CAMPTO [Suspect]
     Active Substance: IRINOTECAN
     Dosage: 143.4 MG/M2, 1X/DAY (224 MG/BODY)
     Route: 041
     Dates: start: 20140807, end: 20140807
  77. 5-FU [Suspect]
     Active Substance: FLUOROURACIL
     Dosage: 2388 MG/M2,  ONCE IN 2 DAYS (3730 MG/BODY)
     Route: 041
     Dates: start: 20140807, end: 20140807
  78. 5-FU [Suspect]
     Active Substance: FLUOROURACIL
     Dosage: 2388 MG/M2,  ONCE IN 2 DAYS (3730 MG/BODY)
     Route: 041
     Dates: start: 20140918, end: 20140918
  79. 5-FU [Suspect]
     Active Substance: FLUOROURACIL
     Dosage: 396.9 MG/M2, 1X/DAY (620 MG/BODY)
     Route: 040
     Dates: start: 20141120, end: 20141120
  80. AVE0005 [Suspect]
     Active Substance: AFLIBERCEPT
     Dosage: 65.3 MG/M2, 1X/DAY (102 MG/BODY)
     Route: 041
     Dates: start: 20140828, end: 20140828
  81. CAMPTO [Suspect]
     Active Substance: IRINOTECAN
     Indication: COLON CANCER
     Dosage: 143.4 MG/M2, 1X/DAY (224 MG/BODY)
     Route: 041
     Dates: start: 20140116, end: 20140116
  82. CAMPTO [Suspect]
     Active Substance: IRINOTECAN
     Dosage: 143.4 MG/M2, 1X/DAY (224 MG/BODY)
     Route: 041
     Dates: start: 20140424, end: 20140424
  83. CAMPTO [Suspect]
     Active Substance: IRINOTECAN
     Dosage: 143.4 MG/M2, 1X/DAY (224 MG/BODY)
     Route: 041
     Dates: start: 20140508, end: 20140508
  84. 5-FU [Suspect]
     Active Substance: FLUOROURACIL
     Dosage: 2388 MG/M2,  ONCE IN 2 DAYS (3730 MG/BODY)
     Route: 041
     Dates: start: 20140410, end: 20140410
  85. 5-FU [Suspect]
     Active Substance: FLUOROURACIL
     Dosage: 2388 MG/M2,  ONCE IN 2 DAYS (3730 MG/BODY)
     Route: 041
     Dates: start: 20140522, end: 20140522
  86. 5-FU [Suspect]
     Active Substance: FLUOROURACIL
     Dosage: 396.9 MG/M2, 1X/DAY (620 MG/BODY)
     Route: 040
     Dates: start: 20140626, end: 20140626
  87. 5-FU [Suspect]
     Active Substance: FLUOROURACIL
     Dosage: 396.9 MG/M2, 1X/DAY (620 MG/BODY)
     Route: 040
     Dates: start: 20140717, end: 20140717
  88. 5-FU [Suspect]
     Active Substance: FLUOROURACIL
     Dosage: 2388 MG/M2,  ONCE IN 2 DAYS (3730 MG/BODY)
     Route: 041
     Dates: start: 20140717, end: 20140717
  89. 5-FU [Suspect]
     Active Substance: FLUOROURACIL
     Dosage: 396.9 MG/M2, 1X/DAY (620 MG/BODY)
     Route: 040
     Dates: start: 20141211, end: 20141211
  90. 5-FU [Suspect]
     Active Substance: FLUOROURACIL
     Dosage: 396.9 MG/M2, 1X/DAY (620 MG/BODY)
     Route: 040
     Dates: start: 20150212, end: 20150212
  91. 5-FU [Suspect]
     Active Substance: FLUOROURACIL
     Dosage: 2388 MG/M2,  ONCE IN 2 DAYS (3730 MG/BODY)
     Route: 041
     Dates: start: 20150304
  92. 5-FU [Suspect]
     Active Substance: FLUOROURACIL
     Dosage: 2388 MG/M2,  ONCE IN 2 DAYS (3730 MG/BODY)
     Route: 041
     Dates: start: 20140227, end: 20140227
  93. AVE0005 [Suspect]
     Active Substance: AFLIBERCEPT
     Dosage: 65.3 MG/M2, 1X/DAY (102 MG/BODY)
     Route: 041
     Dates: start: 20140410, end: 20140410
  94. AVE0005 [Suspect]
     Active Substance: AFLIBERCEPT
     Dosage: 65.3 MG/M2, 1X/DAY (102 MG/BODY)
     Route: 041
     Dates: start: 20140522, end: 20140522
  95. AVE0005 [Suspect]
     Active Substance: AFLIBERCEPT
     Dosage: 65.3 MG/M2, 1X/DAY (102 MG/BODY)
     Route: 041
     Dates: start: 20140605, end: 20140605
  96. AVE0005 [Suspect]
     Active Substance: AFLIBERCEPT
     Dosage: 65.3 MG/M2, 1X/DAY (102 MG/BODY)
     Route: 041
     Dates: start: 20140626, end: 20140626
  97. AVE0005 [Suspect]
     Active Substance: AFLIBERCEPT
     Dosage: 65.3 MG/M2, 1X/DAY (102 MG/BODY)
     Route: 041
     Dates: start: 20141009, end: 20141009
  98. AVE0005 [Suspect]
     Active Substance: AFLIBERCEPT
     Dosage: 65.3 MG/M2, 1X/DAY (102 MG/BODY)
     Route: 041
     Dates: start: 20141120, end: 20141120
  99. AVE0005 [Suspect]
     Active Substance: AFLIBERCEPT
     Dosage: 65.3 MG/M2, 1X/DAY (102 MG/BODY)
     Route: 041
     Dates: start: 20141211, end: 20141211
  100. LEVOFOLINATE CALCIUM [Concomitant]
     Active Substance: LEUCOVORIN CALCIUM
     Indication: COLON CANCER
     Dosage: 149.8 MG/M2, (234 MG/BODY)
     Dates: start: 20140116, end: 20150304

REACTIONS (2)
  - Dehydration [Recovered/Resolved]
  - Urinary tract infection [Recovered/Resolved]

NARRATIVE: CASE EVENT DATE: 20150318
